FAERS Safety Report 14058051 (Version 2)
Quarter: 2017Q4

REPORT INFORMATION
  Report Type: Spontaneous
  Country: US (occurrence: US)
  Receive Date: 20171006
  Receipt Date: 20171023
  Transmission Date: 20180321
  Serious: Yes (Other)
  Sender: FDA-Public Use
  Company Number: US-TEVA-812795USA

PATIENT
  Sex: Female
  Weight: 47.22 kg

DRUGS (3)
  1. AMPHETAMINE W/DEXTROAMPHETAMINE [Suspect]
     Active Substance: AMPHETAMINE SULFATE\DEXTROAMPHETAMINE
     Indication: ATTENTION DEFICIT/HYPERACTIVITY DISORDER
     Dosage: 50 MILLIGRAM DAILY;
     Route: 048
  2. MEGESTROL [Suspect]
     Active Substance: MEGESTROL
     Route: 065
  3. DICYCLOMINE [Suspect]
     Active Substance: DICYCLOMINE HYDROCHLORIDE
     Indication: ABDOMINAL PAIN UPPER
     Route: 065
     Dates: start: 20170921

REACTIONS (4)
  - Confusional state [Unknown]
  - Fatigue [Unknown]
  - Somnolence [Unknown]
  - Product use in unapproved indication [Unknown]
